FAERS Safety Report 19681998 (Version 27)
Quarter: 2023Q4

REPORT INFORMATION
  Report Type: Report from Study
  Country: CL (occurrence: CL)
  Receive Date: 20210810
  Receipt Date: 20231020
  Transmission Date: 20240110
  Serious: Yes (Life-Threatening, Hospitalization, Other)
  Sender: FDA-Public Use
  Company Number: CL-TAKEDA-2021TUS041348

PATIENT
  Age: 4 Year
  Sex: Male
  Weight: 32 kg

DRUGS (10)
  1. IDURSULFASE [Suspect]
     Active Substance: IDURSULFASE
     Indication: Mucopolysaccharidosis II
     Dosage: UNK UNK, 1/WEEK
     Route: 042
  2. IDURSULFASE [Suspect]
     Active Substance: IDURSULFASE
     Indication: Supplementation therapy
     Dosage: UNK UNK, 1/WEEK
     Route: 042
  3. IDURSULFASE [Suspect]
     Active Substance: IDURSULFASE
     Dosage: UNK UNK, 1/WEEK
     Route: 042
  4. IDURSULFASE [Suspect]
     Active Substance: IDURSULFASE
     Dosage: UNK UNK, 1/WEEK
     Route: 042
  5. IDURSULFASE [Suspect]
     Active Substance: IDURSULFASE
     Dosage: UNK UNK, 1/WEEK
     Route: 042
  6. IDURSULFASE [Suspect]
     Active Substance: IDURSULFASE
     Dosage: UNK UNK, 1/WEEK
     Route: 042
  7. IDURSULFASE [Suspect]
     Active Substance: IDURSULFASE
     Dosage: UNK UNK, 1/WEEK
     Route: 042
  8. IDURSULFASE [Suspect]
     Active Substance: IDURSULFASE
     Dosage: UNK UNK, 1/WEEK
     Route: 042
  9. IDURSULFASE [Suspect]
     Active Substance: IDURSULFASE
     Dosage: 0.5 MILLIGRAM/KILOGRAM, 1/WEEK
     Route: 042
  10. MONTELUKAST [Suspect]
     Active Substance: MONTELUKAST SODIUM
     Indication: Product used for unknown indication
     Dosage: UNK
     Route: 065

REACTIONS (46)
  - Respiratory distress [Recovering/Resolving]
  - Increased bronchial secretion [Not Recovered/Not Resolved]
  - Otorrhoea [Unknown]
  - Croup infectious [Recovering/Resolving]
  - Hypoventilation [Recovering/Resolving]
  - Spinal stenosis [Unknown]
  - Thrombosis [Unknown]
  - Bronchial obstruction [Recovered/Resolved]
  - Pneumococcal infection [Recovered/Resolved]
  - Tonsillar hypertrophy [Recovering/Resolving]
  - Ear infection [Recovering/Resolving]
  - Cough [Recovering/Resolving]
  - Rhinovirus infection [Recovering/Resolving]
  - COVID-19 [Recovering/Resolving]
  - Umbilical hernia [Recovering/Resolving]
  - Rales [Recovering/Resolving]
  - Abdominal distension [Unknown]
  - Skin exfoliation [Unknown]
  - Faecal volume decreased [Unknown]
  - Breath sounds abnormal [Unknown]
  - Bronchitis [Recovering/Resolving]
  - Rhinitis [Recovered/Resolved]
  - General physical condition abnormal [Recovering/Resolving]
  - Kidney enlargement [Recovering/Resolving]
  - Ear haemorrhage [Recovering/Resolving]
  - Tympanic membrane perforation [Recovering/Resolving]
  - Irritability [Recovering/Resolving]
  - Restlessness [Unknown]
  - Injury [Unknown]
  - Lower limb fracture [Unknown]
  - Food refusal [Recovered/Resolved]
  - Discouragement [Recovered/Resolved]
  - Eye discharge [Recovering/Resolving]
  - Body temperature increased [Recovered/Resolved]
  - Otitis media [Unknown]
  - Facial discomfort [Recovered/Resolved]
  - Laryngitis [Recovering/Resolving]
  - Device dislocation [Recovering/Resolving]
  - Hypertension [Recovered/Resolved]
  - Wheezing [Unknown]
  - Tachycardia [Recovering/Resolving]
  - Erythema [Unknown]
  - Pyrexia [Recovered/Resolved]
  - Aggression [Unknown]
  - Neuropsychological symptoms [Unknown]
  - Device occlusion [Recovered/Resolved]

NARRATIVE: CASE EVENT DATE: 20210624
